FAERS Safety Report 10193950 (Version 1)
Quarter: 2014Q2

REPORT INFORMATION
  Report Type: Spontaneous
  Country: US (occurrence: US)
  Receive Date: 20140524
  Receipt Date: 20140524
  Transmission Date: 20141212
  Serious: No
  Sender: FDA-Public Use
  Company Number: US-SANOFI-AVENTIS-2013SA053422

PATIENT
  Age: 60 Year
  Sex: Male

DRUGS (2)
  1. LANTUS SOLOSTAR [Suspect]
     Dosage: TAKEN FROM:3 1/2 YEARS DOSE:40 UNIT(S)
     Route: 051
     Dates: end: 20130521
  2. SOLOSTAR [Suspect]
     Dosage: TAKEN FROM:3 1/2 YEARS
     Dates: end: 20130521

REACTIONS (1)
  - Pruritus generalised [Unknown]
